FAERS Safety Report 13670218 (Version 1)
Quarter: 2017Q2

REPORT INFORMATION
  Report Type: Spontaneous
  Country: FR (occurrence: FR)
  Receive Date: 20170620
  Receipt Date: 20170620
  Transmission Date: 20170830
  Serious: Yes (Hospitalization)
  Sender: FDA-Public Use
  Company Number: FR-ASTRAZENECA-2017SE63459

PATIENT
  Age: 23154 Day
  Sex: Female

DRUGS (9)
  1. CLOPIXOL [Suspect]
     Active Substance: ZUCLOPENTHIXOL ACETATE
     Indication: SCHIZOPHRENIA
     Dosage: 50 DROPS THRICE A DAY.
     Route: 048
     Dates: end: 20161121
  2. URBANYL [Concomitant]
     Active Substance: CLOBAZAM
     Indication: AGITATION
     Dosage: ONE DOSAGE FORM IN MORNING, AFTERNOON AND EVENING, TWO DOSAGE FORMS AT NIGHT
     Route: 048
     Dates: end: 20161118
  3. LEVOTHYROX [Concomitant]
     Active Substance: LEVOTHYROXINE
     Indication: HYPOTHYROIDISM
     Route: 048
  4. PAROXETINE HYDROCHLORIDE. [Concomitant]
     Active Substance: PAROXETINE HYDROCHLORIDE
     Indication: DEPRESSION
     Route: 048
  5. TERCIAN [Suspect]
     Active Substance: CYAMEMAZINE
     Indication: SCHIZOPHRENIA
     Dosage: 0.5 DOSAGE FORM IN MORNING, 0.5 DOSAGE FORM IN THE AFTERNOON AND TWO DOSAGE FORMS AT NIGHT
     Route: 048
     Dates: end: 20161121
  6. URBANYL [Concomitant]
     Active Substance: CLOBAZAM
     Indication: AGITATION
     Dosage: TWO DOSAGE FORMS IN MORNING, AFTERNOON AND AT NIGHT
     Route: 048
     Dates: start: 20161118
  7. XEROQUEL [Suspect]
     Active Substance: QUETIAPINE FUMARATE
     Indication: SCHIZOPHRENIA
     Route: 048
     Dates: end: 20161121
  8. ZYPREXA [Suspect]
     Active Substance: OLANZAPINE
     Indication: SCHIZOPHRENIA
     Dosage: ONE DOSAGE FORM IN MORNING AND TWO DOSAGE FORMS AT NIGHT
     Route: 048
     Dates: end: 20161121
  9. NOZINAN [Suspect]
     Active Substance: LEVOMEPROMAZINE
     Indication: SCHIZOPHRENIA
     Dosage: 100 DROPS THRICE A DAY AND 100 DROPS AT 4.00 PM IF REQUIRED
     Route: 048
     Dates: end: 20161121

REACTIONS (3)
  - Subileus [Recovered/Resolved]
  - Pneumonia aspiration [Recovered/Resolved]
  - Acute respiratory failure [Recovered/Resolved]

NARRATIVE: CASE EVENT DATE: 20161119
